FAERS Safety Report 4284235-7 (Version None)
Quarter: 2004Q1

REPORT INFORMATION
  Report Type: 
  Country: None (occurrence: None)
  Receive Date: 20040203
  Receipt Date: 20040127
  Transmission Date: 20041129
  Serious: Yes (Hospitalization)
  Sender: FDA-Public Use
  Company Number: FR-ROCHE-357275

PATIENT
  Age: 79 Year
  Sex: Female
  Weight: 50 kg

DRUGS (7)
  1. RIVOTRIL [Suspect]
     Indication: DRUG USE FOR UNKNOWN INDICATION
     Route: 048
     Dates: end: 20030911
  2. LOVENOX [Suspect]
     Route: 058
     Dates: start: 20030903, end: 20030911
  3. PENTASA [Suspect]
     Indication: DRUG USE FOR UNKNOWN INDICATION
     Route: 048
     Dates: start: 20030715, end: 20030911
  4. ALDACTAZINE [Suspect]
     Indication: DRUG USE FOR UNKNOWN INDICATION
     Route: 048
     Dates: end: 20030911
  5. CIFLOX [Concomitant]
     Indication: ANTI-INFECTIVE THERAPY
     Route: 048
  6. AUGMENTIN [Concomitant]
     Indication: ANTI-INFECTIVE THERAPY
  7. NEUPOGEN [Concomitant]

REACTIONS (4)
  - AGRANULOCYTOSIS [None]
  - PYREXIA [None]
  - RHINITIS [None]
  - SPINAL MYELOGRAM ABNORMAL [None]
